FAERS Safety Report 11242254 (Version 3)
Quarter: 2015Q3

REPORT INFORMATION
  Report Type: Spontaneous
  Country: US (occurrence: US)
  Receive Date: 20150707
  Receipt Date: 20150822
  Transmission Date: 20151125
  Serious: Yes (Death, Hospitalization, Disabling, Other)
  Sender: FDA-Public Use
  Company Number: US-009507513-1507USA001931

PATIENT
  Age: 65 Year
  Sex: Female
  Weight: 59.41 kg

DRUGS (19)
  1. HYDROCHLOROTHIAZIDE. [Concomitant]
     Active Substance: HYDROCHLOROTHIAZIDE
     Dosage: 1 DF, QD
     Route: 048
  2. ASPIRIN. [Concomitant]
     Active Substance: ASPIRIN
     Dosage: AS DIRECTED 4/WEEK
  3. MELOXICAM. [Concomitant]
     Active Substance: MELOXICAM
  4. VYTORIN [Concomitant]
     Active Substance: EZETIMIBE\SIMVASTATIN
  5. GLYBURIDE. [Concomitant]
     Active Substance: GLYBURIDE
  6. ALTACE [Concomitant]
     Active Substance: RAMIPRIL
     Dosage: UNK
     Dates: end: 20150619
  7. GABAPENTIN. [Concomitant]
     Active Substance: GABAPENTIN
     Dosage: UNK, QD
     Route: 048
  8. VENLAFAXINE HYDROCHLORIDE. [Concomitant]
     Active Substance: VENLAFAXINE HYDROCHLORIDE
     Dosage: 1 DF, QD
     Route: 048
  9. ACTOS [Concomitant]
     Active Substance: PIOGLITAZONE HYDROCHLORIDE
     Dosage: UNK
     Dates: end: 20150619
  10. ADVAIR HFA [Concomitant]
     Active Substance: FLUTICASONE PROPIONATE\SALMETEROL XINAFOATE
     Dosage: 1 DF, BID
     Route: 055
  11. NORTRIPTYLINE [Concomitant]
     Active Substance: NORTRIPTYLINE
     Dosage: 50 MG, BID
     Route: 048
  12. LANTUS [Concomitant]
     Active Substance: INSULIN GLARGINE
     Dosage: 12 DF, QD
  13. TRAZODONE HYDROCHLORIDE. [Concomitant]
     Active Substance: TRAZODONE HYDROCHLORIDE
     Dosage: 1 DF, QD
     Route: 048
  14. SINGULAIR [Concomitant]
     Active Substance: MONTELUKAST SODIUM
     Dosage: 1 DF, QD
     Route: 048
  15. PROAIR HFA [Concomitant]
     Active Substance: ALBUTEROL SULFATE
     Dosage: 2 DF, TID
     Route: 055
  16. ALPRAZOLAM. [Concomitant]
     Active Substance: ALPRAZOLAM
  17. JANUVIA [Suspect]
     Active Substance: SITAGLIPTIN PHOSPHATE
     Indication: TYPE 2 DIABETES MELLITUS
     Dosage: 1 DF, QD X90
     Route: 048
     Dates: start: 2014, end: 20150619
  18. FLONASE [Concomitant]
     Active Substance: FLUTICASONE PROPIONATE
     Dosage: 1 SPRAY IN EACH NOSTRIL DAILY
     Route: 055
  19. RESTASIS [Concomitant]
     Active Substance: CYCLOSPORINE

REACTIONS (10)
  - Anxiety disorder [Unknown]
  - Blood chloride decreased [Unknown]
  - Urobilinogen urine increased [Unknown]
  - Red cell distribution width increased [Unknown]
  - Headache [Unknown]
  - Urine abnormality [Unknown]
  - Pancreatic carcinoma [Fatal]
  - Nasal polyps [Unknown]
  - Urine ketone body present [Unknown]
  - Constipation [Unknown]

NARRATIVE: CASE EVENT DATE: 20150617
